FAERS Safety Report 12836912 (Version 1)
Quarter: 2016Q4

REPORT INFORMATION
  Report Type: Spontaneous
  Country: IT (occurrence: IT)
  Receive Date: 20161011
  Receipt Date: 20161011
  Transmission Date: 20170207
  Serious: Yes (Hospitalization)
  Sender: FDA-Public Use
  Company Number: IT-BAXALTA-2016BLT007334

PATIENT
  Age: 82 Year
  Sex: Female

DRUGS (2)
  1. FLEXBUMIN [Suspect]
     Active Substance: ALBUMIN HUMAN
     Indication: OFF LABEL USE
  2. FLEXBUMIN [Suspect]
     Active Substance: ALBUMIN HUMAN
     Indication: GRAVITATIONAL OEDEMA
     Dosage: 1000 MG, 1X A DAY
     Route: 041
     Dates: start: 20161003, end: 20161003

REACTIONS (2)
  - Angioedema [Recovered/Resolved]
  - Hypoproteinaemia [Recovered/Resolved]

NARRATIVE: CASE EVENT DATE: 20161003
